FAERS Safety Report 10264976 (Version 1)
Quarter: 2014Q2

REPORT INFORMATION
  Report Type: Spontaneous
  Country: US (occurrence: US)
  Receive Date: 20140627
  Receipt Date: 20140627
  Transmission Date: 20141212
  Serious: No
  Sender: FDA-Public Use
  Company Number: US-PFIZER INC-2014174375

PATIENT
  Sex: Female

DRUGS (2)
  1. NEURONTIN [Suspect]
     Dosage: 600 MG, 3X/DAY
  2. NAPROXEN SODIUM [Suspect]
     Dosage: 500 MG, 2X/DAY

REACTIONS (1)
  - Somnolence [Not Recovered/Not Resolved]
